FAERS Safety Report 8942226 (Version 1)
Quarter: 2012Q4

REPORT INFORMATION
  Report Type: Spontaneous
  Country: US (occurrence: None)
  Receive Date: 20121129
  Receipt Date: 20121129
  Transmission Date: 20130627
  Serious: Yes (Other)
  Sender: FDA-Public Use
  Company Number: None

PATIENT
  Age: 10 Year
  Sex: Male
  Weight: 31.75 kg

DRUGS (2)
  1. GUANFACINE [Suspect]
     Indication: ADHD
     Route: 048
     Dates: start: 20110303, end: 20110331
  2. CONCERTA [Concomitant]

REACTIONS (1)
  - Suicidal ideation [None]
